FAERS Safety Report 20630736 (Version 1)
Quarter: 2022Q1

REPORT INFORMATION
  Report Type: Spontaneous
  Country: JP (occurrence: JP)
  Receive Date: 20220324
  Receipt Date: 20220324
  Transmission Date: 20220423
  Serious: Yes (Other)
  Sender: FDA-Public Use
  Company Number: JP-LUPIN PHARMACEUTICALS INC.-2022-03955

PATIENT
  Age: 4 Year
  Sex: Female
  Weight: 19 kg

DRUGS (3)
  1. CLOBETASOL [Suspect]
     Active Substance: CLOBETASOL
     Indication: Scar
     Dosage: 0.58 GRAM, QD, FOR THE FIRST 43 DAYS, CLOBETASOL WAS USED SPARINGLY IN AN AVERAGE DOSAGE OF 0.58 G/D
     Route: 061
  2. CLOBETASOL [Suspect]
     Active Substance: CLOBETASOL
     Indication: Pruritus
     Dosage: 3.4 GRAM, QD, FOR THE NEXT 29 DAYS, THE SKIN BULGE AND PRURITIC SKIN AREA EXPANDED, AND THE CLOBETAS
     Route: 061
  3. CLOBETASOL [Suspect]
     Active Substance: CLOBETASOL
     Dosage: 5.8 GRAM, QD, FOR THE NEXT 26 DAYS, AN AVERAGE OF 5.8 G/DAY OF CLOBETASOL OINTMENT WAS USED OVER 8%
     Route: 061

REACTIONS (1)
  - Cushing^s syndrome [Recovering/Resolving]
